FAERS Safety Report 5312072-0 (Version None)
Quarter: 2007Q2

REPORT INFORMATION
  Report Type: 
  Country: None (occurrence: None)
  Receive Date: 20070430
  Receipt Date: 20060705
  Transmission Date: 20071010
  Serious: No
  Sender: FDA-Public Use
  Company Number: 2006UW13868

PATIENT
  Age: 50 Year
  Sex: Female
  Weight: 92.1 kg

DRUGS (2)
  1. NEXIUM [Suspect]
     Indication: OESOPHAGEAL DISORDER
     Route: 048
     Dates: start: 20060602, end: 20060628
  2. VITAMIN [Concomitant]

REACTIONS (2)
  - DIARRHOEA [None]
  - FAECAL INCONTINENCE [None]
